FAERS Safety Report 4939454-0 (Version None)
Quarter: 2006Q1

REPORT INFORMATION
  Report Type: 
  Country: None (occurrence: None)
  Receive Date: 20060306
  Receipt Date: 20060217
  Transmission Date: 20060701
  Serious: Yes (Hospitalization)
  Sender: FDA-Public Use
  Company Number: FR200602004030

PATIENT
  Age: 68 Year
  Sex: Female

DRUGS (2)
  1. FORTEO [Suspect]
     Indication: OSTEOPOROSIS
     Dosage: 20 UG, DAILY (1.D), SUBCUTANEOUS
     Route: 058
     Dates: start: 20050901, end: 20051201
  2. FORTEO PEN (FORTEO PEN) [Concomitant]

REACTIONS (3)
  - BREAST CANCER RECURRENT [None]
  - METASTASES TO BONE [None]
  - OESTROGEN RECEPTOR ASSAY POSITIVE [None]
